FAERS Safety Report 18369784 (Version 2)
Quarter: 2020Q4

REPORT INFORMATION
  Report Type: Report from Study
  Country: JP (occurrence: JP)
  Receive Date: 20201012
  Receipt Date: 20201216
  Transmission Date: 20210114
  Serious: Yes (Other)
  Sender: FDA-Public Use
  Company Number: JP-PFIZER INC-2020354030

PATIENT
  Age: 79 Year
  Sex: Male
  Weight: 46 kg

DRUGS (11)
  1. METHYCOBAL [Concomitant]
     Active Substance: METHYLCOBALAMIN
     Dosage: 500 UG, 3X/DAY
     Route: 048
     Dates: end: 20180531
  2. LIMAPROST ALFADEX [Concomitant]
     Active Substance: LIMAPROST
     Dosage: 10 UG, 3X/DAY
     Route: 048
     Dates: end: 20180823
  3. JUVELA N [Concomitant]
     Active Substance: TOCOPHERYL NICOTINATE, D-.ALPHA.
     Dosage: 100 MG, 3X/DAY
     Route: 048
     Dates: end: 20180531
  4. LANDSEN [Concomitant]
     Active Substance: CLONAZEPAM
     Indication: HYPOAESTHESIA
     Dosage: 0.5 MG, 2X/DAY
     Route: 048
     Dates: end: 20200205
  5. VYNDAQEL [Suspect]
     Active Substance: TAFAMIDIS MEGLUMINE
     Indication: HEREDITARY NEUROPATHIC AMYLOIDOSIS
     Dosage: 20 MG, 1X/DAY
     Dates: start: 20180329, end: 20191212
  6. TAKECAB [Concomitant]
     Active Substance: VONOPRAZAN FUMARATE
     Indication: PROPHYLAXIS AGAINST GASTROINTESTINAL ULCER
     Dosage: 10 MG, 1X/DAY
     Route: 048
  7. ACETAMINOPHEN. [Concomitant]
     Active Substance: ACETAMINOPHEN
     Indication: LARYNGEAL PAIN
     Dosage: 400 MG, 1X/DAY
     Route: 048
     Dates: start: 20200204, end: 20200205
  8. REBAMIPIDE [Concomitant]
     Active Substance: REBAMIPIDE
     Indication: PROPHYLAXIS AGAINST GASTROINTESTINAL ULCER
     Dosage: 100 MG, 3X/DAY
     Route: 048
     Dates: start: 20180601
  9. EDIROL [Concomitant]
     Active Substance: ELDECALCITOL
     Indication: OSTEOPOROSIS PROPHYLAXIS
     Dosage: 0.75 UG, 1X/DAY
     Route: 048
     Dates: end: 20200205
  10. LYRICA [Concomitant]
     Active Substance: PREGABALIN
     Indication: HYPOAESTHESIA
     Dosage: 25 MG, 2X/DAY
     Route: 048
     Dates: start: 20190807
  11. LOXOPROFEN SODIUM TAPE [Concomitant]
     Indication: BACK PAIN
     Dosage: 100 MG, AS NEEDED
     Route: 062

REACTIONS (1)
  - Renal impairment [Unknown]

NARRATIVE: CASE EVENT DATE: 20181130
